FAERS Safety Report 22097181 (Version 3)
Quarter: 2023Q2

REPORT INFORMATION
  Report Type: Report from Study
  Country: US (occurrence: US)
  Receive Date: 20230315
  Receipt Date: 20230517
  Transmission Date: 20230721
  Serious: No
  Sender: FDA-Public Use
  Company Number: US-002147023-NVSC2023US055296

PATIENT
  Sex: Male

DRUGS (1)
  1. ENTRESTO [Suspect]
     Active Substance: SACUBITRIL\VALSARTAN
     Indication: Product used for unknown indication
     Dosage: 1 DOSAGE FORM, QD (25/26MG)
     Route: 048

REACTIONS (4)
  - Joint swelling [Unknown]
  - Dizziness [Recovering/Resolving]
  - Product use issue [Unknown]
  - Prescribed underdose [Unknown]
